FAERS Safety Report 13176956 (Version 1)
Quarter: 2017Q1

REPORT INFORMATION
  Report Type: Report from Study
  Country: US (occurrence: US)
  Receive Date: 20170201
  Receipt Date: 20170201
  Transmission Date: 20170428
  Serious: No
  Sender: FDA-Public Use
  Company Number: US-EXELIXIS-CABO-16006763

PATIENT
  Sex: Male

DRUGS (17)
  1. VITAMIN D3 [Concomitant]
     Active Substance: CHOLECALCIFEROL
  2. L-GLUTAMINE [Concomitant]
  3. FINASTERIDE. [Concomitant]
     Active Substance: FINASTERIDE
  4. LEVEMIR [Concomitant]
     Active Substance: INSULIN DETEMIR
  5. CALCITRIOL. [Concomitant]
     Active Substance: CALCITRIOL
  6. CABOMETYX [Suspect]
     Active Substance: CABOZANTINIB S-MALATE
     Indication: RENAL CANCER
     Dosage: 60 MG, QD
     Route: 048
     Dates: start: 20160621, end: 20160718
  7. ALLOPURINOL. [Concomitant]
     Active Substance: ALLOPURINOL
  8. COLACE [Concomitant]
     Active Substance: DOCUSATE SODIUM
  9. CABOMETYX [Suspect]
     Active Substance: CABOZANTINIB S-MALATE
     Dosage: 60 MG, QD
     Route: 048
     Dates: start: 2016
  10. L-CARNITINE [Concomitant]
     Active Substance: LEVOCARNITINE
  11. NIFEDIPINE. [Concomitant]
     Active Substance: NIFEDIPINE
  12. VITAMIN B [Concomitant]
     Active Substance: VITAMIN B
  13. FLOMAX [Concomitant]
     Active Substance: TAMSULOSIN HYDROCHLORIDE
  14. MIRALAX [Concomitant]
     Active Substance: POLYETHYLENE GLYCOL 3350
  15. CHLORTHALIDONE. [Concomitant]
     Active Substance: CHLORTHALIDONE
  16. FERROUS SULFATE. [Concomitant]
     Active Substance: FERROUS SULFATE
  17. SENOKOT-S [Concomitant]
     Active Substance: DOCUSATE SODIUM\SENNOSIDES

REACTIONS (10)
  - Muscle spasms [Unknown]
  - Glossodynia [Unknown]
  - Dry throat [Unknown]
  - Dysgeusia [Unknown]
  - Lip dry [Unknown]
  - Dry mouth [Unknown]
  - Dysphonia [Unknown]
  - Lip pain [Unknown]
  - Constipation [Not Recovered/Not Resolved]
  - Dry skin [Unknown]
